FAERS Safety Report 5639880-0 (Version None)
Quarter: 2008Q1

REPORT INFORMATION
  Report Type: 
  Country: None (occurrence: None)
  Receive Date: 20080227
  Receipt Date: 20080216
  Transmission Date: 20080703
  Serious: Yes (Other)
  Sender: FDA-Public Use
  Company Number: US-JNJFOC-20080204017

PATIENT
  Sex: Female
  Weight: 65.77 kg

DRUGS (8)
  1. FENTANYL TRANSDERMAL SYSTEM [Suspect]
     Indication: BACK PAIN
     Dosage: 50 UG/HR AND 25 UG/HR
     Route: 062
  2. DURAGESIC-100 [Suspect]
     Indication: BACK PAIN
     Route: 062
  3. BACLOFEN [Concomitant]
     Indication: MUSCLE SPASMS
     Route: 048
  4. ZANAFLEX [Concomitant]
     Indication: MUSCLE SPASMS
     Route: 048
  5. NEURONTIN [Concomitant]
     Indication: BACK PAIN
     Route: 048
  6. WELLBUTRIN [Concomitant]
     Indication: DEPRESSION
     Route: 048
  7. FOSOMAX [Concomitant]
     Indication: OSTEOPOROSIS
     Route: 048
  8. CALTRATE [Concomitant]
     Indication: BLOOD CALCIUM
     Route: 048

REACTIONS (4)
  - CHEST PAIN [None]
  - CYST [None]
  - NECK PAIN [None]
  - PAIN IN EXTREMITY [None]
